FAERS Safety Report 15658001 (Version 1)
Quarter: 2018Q4

REPORT INFORMATION
  Report Type: Spontaneous
  Country: BE (occurrence: BE)
  Receive Date: 20181126
  Receipt Date: 20181126
  Transmission Date: 20190205
  Serious: Yes (Life-Threatening, Hospitalization, Other)
  Sender: FDA-Public Use
  Company Number: BE-JNJFOC-20181127739

PATIENT
  Age: 46 Year

DRUGS (2)
  1. CISPLATIN. [Interacting]
     Active Substance: CISPLATIN
     Indication: PERITONEAL MESOTHELIOMA MALIGNANT
     Route: 033
  2. DOXORUBICIN HYDROCHLORIDE. [Suspect]
     Active Substance: DOXORUBICIN HYDROCHLORIDE
     Indication: PERITONEAL MESOTHELIOMA MALIGNANT
     Route: 033

REACTIONS (10)
  - Respiratory acidosis [Recovered/Resolved]
  - Product use in unapproved indication [Unknown]
  - Acute respiratory distress syndrome [Recovered/Resolved]
  - Toxicity to various agents [Recovering/Resolving]
  - Off label use [Unknown]
  - Peritonitis [Recovered/Resolved]
  - Inflammation [Recovered/Resolved]
  - Lactic acidosis [Recovered/Resolved]
  - Drug interaction [Recovered/Resolved]
  - Incorrect route of product administration [Unknown]
